FAERS Safety Report 9574789 (Version 1)
Quarter: 2013Q4

REPORT INFORMATION
  Report Type: Spontaneous
  Country: US (occurrence: US)
  Receive Date: 20131001
  Receipt Date: 20131001
  Transmission Date: 20140711
  Serious: Yes (Life-Threatening, Hospitalization)
  Sender: FDA-Public Use
  Company Number: US-PFIZER INC-2013276869

PATIENT
  Age: 26 Year
  Sex: Male

DRUGS (5)
  1. ZOLOFT [Suspect]
     Dosage: UNK
  2. REBIF [Suspect]
     Indication: MULTIPLE SCLEROSIS
     Dosage: 44 UG, 3 TIMES PER WEEK
     Route: 058
     Dates: start: 20080915
  3. ABILIFY [Suspect]
     Dosage: UNK
     Dates: start: 201004
  4. BACLOFEN [Concomitant]
     Dosage: UNK
  5. ATIVAN [Concomitant]
     Dosage: UNK

REACTIONS (11)
  - Suicide attempt [Recovered/Resolved]
  - Abnormal behaviour [Recovered/Resolved]
  - Mood swings [Recovered/Resolved]
  - Grand mal convulsion [Recovered/Resolved]
  - Dehydration [Recovered/Resolved]
  - Depression [Recovered/Resolved]
  - Intentional overdose [Recovered/Resolved]
  - Intervertebral disc protrusion [Recovering/Resolving]
  - Back injury [Recovering/Resolving]
  - Fall [Recovered/Resolved]
  - Gait disturbance [Recovering/Resolving]
